FAERS Safety Report 9062384 (Version 1)
Quarter: 2013Q1

REPORT INFORMATION
  Report Type: Spontaneous
  Country: FR (occurrence: FR)
  Receive Date: 20130213
  Receipt Date: 20130213
  Transmission Date: 20140127
  Serious: Yes (Hospitalization)
  Sender: FDA-Public Use
  Company Number: FR-GLAXOSMITHKLINE-B0865105A

PATIENT
  Age: 5 None
  Sex: Female
  Weight: 21.1 kg

DRUGS (5)
  1. ZOPHREN [Suspect]
     Indication: PROPHYLAXIS
     Route: 065
     Dates: start: 20121031, end: 201211
  2. IFOSFAMIDE [Suspect]
     Indication: GERM CELL CANCER
     Dosage: 1400MG PER DAY
     Route: 042
     Dates: start: 20121031, end: 20121102
  3. ETOPOSIDE [Suspect]
     Indication: GERM CELL CANCER
     Dosage: 78MG PER DAY
     Route: 042
     Dates: start: 20121031, end: 20121102
  4. MESNA [Suspect]
     Indication: PROPHYLAXIS
     Route: 065
  5. PLITICAN [Suspect]
     Indication: PROPHYLAXIS
     Route: 065
     Dates: start: 20121031

REACTIONS (3)
  - Petit mal epilepsy [Recovered/Resolved]
  - Partial seizures [Recovered/Resolved]
  - Encephalopathy [Recovered/Resolved]
